FAERS Safety Report 14593866 (Version 1)
Quarter: 2018Q1

REPORT INFORMATION
  Report Type: Spontaneous
  Country: JP (occurrence: JP)
  Receive Date: 20180302
  Receipt Date: 20180302
  Transmission Date: 20180509
  Serious: Yes (Other)
  Sender: FDA-Public Use
  Company Number: JP-ALLERGAN-1811781US

PATIENT
  Age: 4 Decade
  Sex: Male

DRUGS (1)
  1. LINACLOTIDE - BP [Suspect]
     Active Substance: LINACLOTIDE
     Indication: CONSTIPATION
     Dosage: 0.5 MG, QD
     Route: 048

REACTIONS (2)
  - Intestinal obstruction [Recovered/Resolved]
  - Off label use [Unknown]
